FAERS Safety Report 23993461 (Version 1)
Quarter: 2024Q2

REPORT INFORMATION
  Report Type: Spontaneous
  Country: US (occurrence: US)
  Receive Date: 20240620
  Receipt Date: 20240620
  Transmission Date: 20240715
  Serious: Yes (Life-Threatening, Hospitalization, Other)
  Sender: FDA-Public Use
  Company Number: US-862174955-ML2024-03529

PATIENT
  Age: 20 Year
  Sex: Male

DRUGS (1)
  1. DIPHENHYDRAMINE HYDROCHLORIDE [Suspect]
     Active Substance: DIPHENHYDRAMINE HYDROCHLORIDE
     Indication: Product used for unknown indication
     Dosage: DOSE: 300 PILLS (25 MG EACH)

REACTIONS (14)
  - Shock [Unknown]
  - Cardiac failure [Unknown]
  - Mental status changes [Unknown]
  - Acute respiratory distress syndrome [Unknown]
  - Multiple organ dysfunction syndrome [Unknown]
  - Hepatic failure [Unknown]
  - Renal failure [Unknown]
  - Anaemia [Unknown]
  - Hypoxia [Unknown]
  - Pulmonary haemorrhage [Unknown]
  - Toxicity to various agents [Unknown]
  - Seizure [Unknown]
  - Thrombocytopenia [Unknown]
  - Intentional overdose [Unknown]
